FAERS Safety Report 10075798 (Version 2)
Quarter: 2014Q2

REPORT INFORMATION
  Report Type: Spontaneous
  Country: IT (occurrence: IT)
  Receive Date: 20140414
  Receipt Date: 20140605
  Transmission Date: 20141212
  Serious: Yes (Hospitalization)
  Sender: FDA-Public Use
  Company Number: IT-CELGENEUS-083-50794-14040015

PATIENT
  Age: 70 Year
  Sex: Male

DRUGS (1)
  1. VIDAZA [Suspect]
     Indication: MYELODYSPLASTIC SYNDROME
     Dosage: 132 MILLIGRAM
     Route: 058
     Dates: start: 20131125, end: 20131203

REACTIONS (2)
  - Myelofibrosis [Recovering/Resolving]
  - Myelodysplastic syndrome [Recovering/Resolving]
